FAERS Safety Report 10313384 (Version 2)
Quarter: 2014Q3

REPORT INFORMATION
  Report Type: Spontaneous
  Country: JP (occurrence: None)
  Receive Date: 20140716
  Receipt Date: 20140805
  Transmission Date: 20150326
  Serious: Yes (Hospitalization)
  Sender: FDA-Public Use
  Company Number: ABR_01736_2014

PATIENT
  Age: 27 Year
  Sex: Male

DRUGS (1)
  1. GLIADEL [Suspect]
     Active Substance: CARMUSTINE
     Indication: MALIGNANT GLIOMA
     Dosage: 5 DF 1X, (38.5 MG) INTRACEREBRAL
     Dates: start: 20140618

REACTIONS (3)
  - Cerebral infarction [None]
  - Meningitis [None]
  - Restlessness [None]

NARRATIVE: CASE EVENT DATE: 20140625
